FAERS Safety Report 6104359-9 (Version None)
Quarter: 2009Q1

REPORT INFORMATION
  Report Type: 
  Country: None (occurrence: None)
  Receive Date: 20090305
  Receipt Date: 20090224
  Transmission Date: 20090719
  Serious: Yes (Other)
  Sender: FDA-Public Use
  Company Number: US-ELI_LILLY_AND_COMPANY-US200902007731

PATIENT
  Age: 38 Year
  Sex: Female

DRUGS (2)
  1. CYMBALTA [Suspect]
     Indication: DEPRESSION
     Dosage: 60 MG, UNK
  2. CELEBREX [Concomitant]
     Dosage: 200 MG, DAILY (1/D)

REACTIONS (1)
  - RETINAL ARTERY OCCLUSION [None]
